FAERS Safety Report 4732677-5 (Version None)
Quarter: 2005Q3

REPORT INFORMATION
  Report Type: 
  Country: None (occurrence: None)
  Receive Date: 20050803
  Receipt Date: 20050727
  Transmission Date: 20060218
  Serious: Yes (Hospitalization)
  Sender: FDA-Public Use
  Company Number: 2005CG01322

PATIENT
  Age: 46 Year
  Sex: Female
  Weight: 48 kg

DRUGS (11)
  1. CRESTOR [Suspect]
     Route: 048
     Dates: start: 20040601, end: 20050601
  2. EZETROL [Suspect]
     Route: 048
     Dates: start: 20050101, end: 20050601
  3. TENORMIN [Concomitant]
     Route: 048
     Dates: start: 19960101
  4. MAGNE B6 [Concomitant]
     Route: 048
     Dates: start: 20000101
  5. KARDEGIC [Concomitant]
     Route: 048
     Dates: start: 20050101
  6. AMLODIPINE BESYLATE [Concomitant]
     Route: 048
     Dates: start: 20020101
  7. PLAVIX [Concomitant]
     Dates: start: 20030101
  8. DITROPAN [Concomitant]
     Dates: start: 20040201
  9. RETROVIR [Concomitant]
  10. EPIVIR [Concomitant]
  11. SUSTIVA [Concomitant]

REACTIONS (8)
  - ALANINE AMINOTRANSFERASE INCREASED [None]
  - ASPARTATE AMINOTRANSFERASE INCREASED [None]
  - CONJUNCTIVITIS ALLERGIC [None]
  - CYTOMEGALOVIRUS INFECTION [None]
  - LYMPHOMA [None]
  - PYREXIA [None]
  - RHABDOMYOLYSIS [None]
  - RHINITIS [None]
